FAERS Safety Report 7506978-1 (Version None)
Quarter: 2011Q2

REPORT INFORMATION
  Report Type: 
  Country: None (occurrence: None)
  Receive Date: 20110526
  Receipt Date: 20110516
  Transmission Date: 20111010
  Serious: Yes (Hospitalization)
  Sender: FDA-Public Use
  Company Number: FR-UCBSA-032962

PATIENT
  Age: 25 Year
  Sex: Male

DRUGS (3)
  1. VIMPAT [Suspect]
     Dosage: VOLUNTARY DRUG INTOXICATION, MORE THAN FIVE TABLETS
  2. TEGRETOL [Concomitant]
     Route: 048
  3. VIMPAT [Suspect]
     Route: 048

REACTIONS (4)
  - STATUS EPILEPTICUS [None]
  - VERTIGO [None]
  - TOXICITY TO VARIOUS AGENTS [None]
  - NAUSEA [None]
